FAERS Safety Report 5288778-9 (Version None)
Quarter: 2007Q2

REPORT INFORMATION
  Report Type: 
  Country: None (occurrence: None)
  Receive Date: 20070405
  Receipt Date: 20070322
  Transmission Date: 20071010
  Serious: Yes (Hospitalization, Other)
  Sender: FDA-Public Use
  Company Number: US-ELI_LILLY_AND_COMPANY-US200703004807

PATIENT
  Age: 58 Year
  Sex: Male

DRUGS (7)
  1. CYMBALTA [Suspect]
     Indication: DEPRESSION
     Dosage: 30 MG, UNK
     Route: 048
     Dates: start: 20070110, end: 20070118
  2. CYMBALTA [Suspect]
     Dosage: 60 MG, UNK
     Route: 048
     Dates: start: 20070119, end: 20070101
  3. CYMBALTA [Suspect]
     Dosage: 30 MG, UNK
     Route: 048
     Dates: start: 20070101, end: 20070320
  4. BENICAR HCT [Concomitant]
     Indication: BLOOD PRESSURE
     Dosage: UNK, UNK
     Dates: start: 20070101, end: 20070208
  5. BENICAR HCT [Concomitant]
     Dates: start: 20070309
  6. BENICAR [Concomitant]
     Dosage: UNK, UNK
     Dates: start: 20070101, end: 20070308
  7. BENICAR [Concomitant]
     Dosage: UNK, UNK
     Dates: end: 20070101

REACTIONS (12)
  - BLOOD GLUCOSE FLUCTUATION [None]
  - BLOOD PRESSURE DECREASED [None]
  - COLD SWEAT [None]
  - CONSTIPATION [None]
  - DIZZINESS [None]
  - DIZZINESS POSTURAL [None]
  - DRY MOUTH [None]
  - DYSPNOEA [None]
  - FATIGUE [None]
  - FEELING ABNORMAL [None]
  - HEART RATE INCREASED [None]
  - HYPOTENSION [None]
